FAERS Safety Report 6699469-1 (Version None)
Quarter: 2010Q2

REPORT INFORMATION
  Report Type: 
  Country: None (occurrence: None)
  Receive Date: 20100426
  Receipt Date: 20100421
  Transmission Date: 20101027
  Serious: Yes (Hospitalization)
  Sender: FDA-Public Use
  Company Number: ALL1-2010-02324

PATIENT
  Age: 60 Year
  Sex: Female
  Weight: 70.3 kg

DRUGS (7)
  1. FOSRENOL [Suspect]
     Indication: HYPERPHOSPHATAEMIA
     Dosage: 1000 MG, 1XLDAY:QD WITH BIGGEST MEAL, ORAL
     Route: 048
     Dates: start: 20080101
  2. FOSRENOL [Suspect]
     Indication: RENAL FAILURE CHRONIC
     Dosage: 1000 MG, 1XLDAY:QD WITH BIGGEST MEAL, ORAL
     Route: 048
     Dates: start: 20080101
  3. ZETIA (EZETIMIBE) TABLET [Concomitant]
  4. LIPITOR [Concomitant]
  5. PRILOSEC             /00661203/ (OMEPRAZOLE MAGNESIUM) CAPSULE [Concomitant]
  6. ZOLOFT           /01011402/ (SERTRALINE HYDROCHLORIDE) TABLET [Concomitant]
  7. CLONAZEPAM [Concomitant]

REACTIONS (2)
  - PNEUMONIA [None]
  - PYREXIA [None]
